FAERS Safety Report 5398433-2 (Version None)
Quarter: 2007Q3

REPORT INFORMATION
  Report Type: 
  Country: None (occurrence: None)
  Receive Date: 20070724
  Receipt Date: 20070708
  Transmission Date: 20080115
  Serious: No
  Sender: FDA-Public Use
  Company Number: 2007IT003753

PATIENT
  Sex: Female

DRUGS (1)
  1. ALOXI [Suspect]
     Indication: PROPHYLAXIS OF NAUSEA AND VOMITING
     Dosage: INTRAVENOUS
     Route: 042

REACTIONS (3)
  - BLOOD PRESSURE DECREASED [None]
  - EMOTIONAL DISORDER [None]
  - SOMNOLENCE [None]
